FAERS Safety Report 4993177-0 (Version None)
Quarter: 2006Q1

REPORT INFORMATION
  Report Type: 
  Country: None (occurrence: None)
  Receive Date: 20060313
  Receipt Date: 20051129
  Transmission Date: 20060701
  Serious: No
  Sender: FDA-Public Use
  Company Number: 2005-BP-18576BP

PATIENT
  Sex: Female

DRUGS (12)
  1. SPIRIVA [Suspect]
     Indication: CHRONIC OBSTRUCTIVE PULMONARY DISEASE
     Dosage: 18 MCG (18 MCG,1 BREATH),IH
  2. SPIRIVA [Suspect]
     Indication: EMPHYSEMA
     Dosage: 18 MCG (18 MCG,1 BREATH),IH
  3. SPIRIVA [Suspect]
  4. ALBUTEROL [Concomitant]
  5. LAMICTAL [Concomitant]
  6. EFFEXOR [Concomitant]
  7. SEROQUEL [Concomitant]
  8. LESCOL [Concomitant]
  9. SYNTHROID [Concomitant]
  10. GEODON [Concomitant]
  11. ASPIRIN [Concomitant]
  12. MULTIVITAMIN [Concomitant]

REACTIONS (2)
  - DRUG EFFECT DECREASED [None]
  - INCREASED UPPER AIRWAY SECRETION [None]
